FAERS Safety Report 15417538 (Version 1)
Quarter: 2018Q3

REPORT INFORMATION
  Report Type: Spontaneous
  Country: US (occurrence: US)
  Receive Date: 20180924
  Receipt Date: 20180924
  Transmission Date: 20181010
  Serious: No
  Sender: FDA-Public Use
  Company Number: US-SUNOVION-2018SUN003514

PATIENT
  Sex: Male

DRUGS (2)
  1. PROAIR RESPICLICK [Concomitant]
     Active Substance: ALBUTEROL SULFATE
     Dosage: UNK
  2. LONHALA MAGNAIR [Suspect]
     Active Substance: GLYCOPYRROLATE
     Dosage: UNK
     Route: 055
     Dates: start: 2018

REACTIONS (7)
  - Weight increased [Unknown]
  - Limb discomfort [Recovering/Resolving]
  - Mobility decreased [Recovering/Resolving]
  - Fluid retention [Recovering/Resolving]
  - Sleep apnoea syndrome [Unknown]
  - Asthenia [Unknown]
  - Dyspnoea [Unknown]
